FAERS Safety Report 11789830 (Version 1)
Quarter: 2015Q4

REPORT INFORMATION
  Report Type: Other
  Country: US (occurrence: US)
  Receive Date: 20151201
  Receipt Date: 20151201
  Transmission Date: 20160305
  Serious: Yes (Other)
  Sender: FDA-Public Use
  Company Number: US-DEP_13071_2015

PATIENT
  Age: 56 Year
  Sex: Female
  Weight: 62 kg

DRUGS (6)
  1. GRALISE [Suspect]
     Active Substance: GABAPENTIN
     Indication: NEURALGIA
     Dosage: TITRATED TO 600 MG, ONCE DAILY
     Route: 048
     Dates: start: 20151103, end: 20151109
  2. AMLODIPINE [Concomitant]
     Active Substance: AMLODIPINE BESYLATE
     Indication: BLOOD PRESSURE ABNORMAL
     Route: 048
     Dates: start: 2014
  3. TRAMADOL. [Concomitant]
     Active Substance: TRAMADOL
     Indication: PAIN
     Dosage: PRN
     Route: 048
     Dates: start: 201508
  4. GRALISE [Suspect]
     Active Substance: GABAPENTIN
     Dosage: SAMPLE PACK, TITRATED UP TO 1800 MG, ONCE DAILY
     Route: 048
     Dates: start: 20151006, end: 20151026
  5. VITAMIN B12 [Concomitant]
     Active Substance: CYANOCOBALAMIN
     Dosage: DF
  6. GRALISE [Suspect]
     Active Substance: GABAPENTIN
     Dosage: TITRATED DOWN TO 1200 MG, ONCE DAILY
     Route: 048
     Dates: start: 20151027, end: 20151102

REACTIONS (4)
  - Vertigo [Recovering/Resolving]
  - Dizziness [Recovering/Resolving]
  - Activities of daily living impaired [Recovering/Resolving]
  - Off label use [Recovered/Resolved]

NARRATIVE: CASE EVENT DATE: 20151006
